FAERS Safety Report 9883619 (Version 1)
Quarter: 2014Q1

REPORT INFORMATION
  Report Type: Spontaneous
  Country: US (occurrence: US)
  Receive Date: 20140210
  Receipt Date: 20140210
  Transmission Date: 20141002
  Serious: Yes (Other)
  Sender: FDA-Public Use
  Company Number: US-AMGEN-USASP2014008784

PATIENT
  Sex: Female

DRUGS (1)
  1. PROLIA [Suspect]
     Indication: PRODUCT USED FOR UNKNOWN INDICATION
     Route: 065

REACTIONS (9)
  - Suicidal ideation [Unknown]
  - Abasia [Unknown]
  - Skin exfoliation [Unknown]
  - Rash erythematous [Unknown]
  - Muscle spasms [Unknown]
  - Pain [Unknown]
  - Quality of life decreased [Unknown]
  - Swelling face [Unknown]
  - Pain in extremity [Unknown]
